FAERS Safety Report 17106098 (Version 1)
Quarter: 2019Q4

REPORT INFORMATION
  Report Type: Spontaneous
  Country: BR (occurrence: BR)
  Receive Date: 20191203
  Receipt Date: 20191203
  Transmission Date: 20200122
  Serious: Yes (Other)
  Sender: FDA-Public Use
  Company Number: BR-BIOGEN-2019BI00813411

PATIENT
  Age: 2 Year
  Sex: Male

DRUGS (1)
  1. SPINRAZA [Suspect]
     Active Substance: NUSINERSEN
     Indication: SPINAL MUSCULAR ATROPHY
     Route: 037

REACTIONS (9)
  - Sinusitis [Unknown]
  - Abdominal distension [Unknown]
  - Wheezing [Unknown]
  - Sepsis [Unknown]
  - Pyrexia [Unknown]
  - Respiratory disorder [Unknown]
  - Increased upper airway secretion [Unknown]
  - Oxygen saturation decreased [Unknown]
  - Tonsillitis [Unknown]
